FAERS Safety Report 13712486 (Version 1)
Quarter: 2017Q3

REPORT INFORMATION
  Report Type: Spontaneous
  Country: US (occurrence: US)
  Receive Date: 20170703
  Receipt Date: 20170703
  Transmission Date: 20171127
  Serious: No
  Sender: FDA-Public Use
  Company Number: US-JNJFOC-20170307663

PATIENT
  Sex: Female
  Weight: 116.12 kg

DRUGS (4)
  1. TRIAMTERENE AND HYDROCHLOROTHIAZIDE [Concomitant]
     Active Substance: HYDROCHLOROTHIAZIDE\TRIAMTERENE
     Indication: BLOOD PRESSURE MEASUREMENT
     Dosage: 37MG/25MG
     Route: 065
  2. GABAPENTIN. [Concomitant]
     Active Substance: GABAPENTIN
     Dosage: ONE AND A HALF TABLETS (THREE TIMES A DAY)
     Route: 065
  3. STELARA [Suspect]
     Active Substance: USTEKINUMAB
     Indication: PSORIATIC ARTHROPATHY
     Dosage: NEXT DOSE IS DUE IN 4 WEEKS, 7 MONTHS AGO
     Route: 058
     Dates: start: 201612
  4. STELARA [Suspect]
     Active Substance: USTEKINUMAB
     Indication: PSORIASIS
     Dosage: NEXT DOSE IS DUE IN 4 WEEKS, 7 MONTHS AGO
     Route: 058
     Dates: start: 201612

REACTIONS (2)
  - Paraesthesia [Unknown]
  - Drug ineffective [Not Recovered/Not Resolved]

NARRATIVE: CASE EVENT DATE: 2017
